FAERS Safety Report 15260370 (Version 1)
Quarter: 2018Q3

REPORT INFORMATION
  Report Type: Spontaneous
  Country: US (occurrence: US)
  Receive Date: 20180809
  Receipt Date: 20180809
  Transmission Date: 20181010
  Serious: Yes (Other)
  Sender: FDA-Public Use
  Company Number: US-MYLANLABS-2018M1058586

PATIENT
  Sex: Female

DRUGS (1)
  1. PREDNISONE. [Suspect]
     Active Substance: PREDNISONE
     Indication: PROPHYLAXIS
     Dosage: UNK
     Route: 048

REACTIONS (4)
  - Off label use [Recovered/Resolved]
  - Intentional product misuse [Recovered/Resolved]
  - Hemiplegia [Recovered/Resolved]
  - Exposure during pregnancy [Recovered/Resolved]
